FAERS Safety Report 8119576 (Version 3)
Quarter: 2013Q3

REPORT INFORMATION
  Report Type: Report from Study
  Country: US (occurrence: US)
  Receive Date: 20110902
  Receipt Date: 20130718
  Transmission Date: 20140515
  Serious: Yes (Hospitalization, Other)
  Sender: FDA-Public Use
  Company Number: US-ABBOTT-11P-163-0850543-00

PATIENT
  Age: 52 Year
  Sex: Female
  Weight: 75.36 kg

DRUGS (8)
  1. HUMIRA 40 MG/0.8 ML PEN [Suspect]
     Indication: PSORIATIC ARTHROPATHY
     Dates: start: 2006
  2. HUMIRA 40 MG/0.8 ML PEN [Suspect]
     Dates: start: 2009, end: 2010
  3. HUMIRA 40 MG/0.8 ML PEN [Suspect]
     Dates: start: 201305
  4. METHOTREXATE [Suspect]
     Indication: PRODUCT USED FOR UNKNOWN INDICATION
  5. FLORASTOR [Concomitant]
     Indication: DISBACTERIOSIS
     Dates: start: 20110812
  6. VITAMIN A [Concomitant]
     Indication: PRODUCT USED FOR UNKNOWN INDICATION
  7. CLARINEX [Concomitant]
     Indication: HYPERSENSITIVITY
     Dates: start: 2009
  8. UNKNOWN MEDICATION [Concomitant]
     Indication: HYPERSENSITIVITY
     Dates: end: 2009

REACTIONS (17)
  - Device dislocation [Unknown]
  - Dyspepsia [Unknown]
  - Arthritis [Recovered/Resolved]
  - Mobility decreased [Recovered/Resolved]
  - Arthritis [Unknown]
  - Wound dehiscence [Unknown]
  - Impaired healing [Unknown]
  - Spinal operation [Unknown]
  - Spinal rod removal [Unknown]
  - Pyrexia [Unknown]
  - Wound secretion [Unknown]
  - Device related infection [Unknown]
  - Psoriatic arthropathy [Unknown]
  - Localised infection [Recovered/Resolved]
  - Drug ineffective [Recovered/Resolved]
  - Wound drainage [Recovered/Resolved]
  - Spinal fracture [Recovered/Resolved]
